FAERS Safety Report 18951667 (Version 1)
Quarter: 2021Q1

REPORT INFORMATION
  Report Type: Spontaneous
  Country: IT (occurrence: IT)
  Receive Date: 20210301
  Receipt Date: 20210301
  Transmission Date: 20210420
  Serious: Yes (Other)
  Sender: FDA-Public Use
  Company Number: IT-AUROBINDO-AUR-APL-2021-008127

PATIENT
  Age: 53 Year
  Sex: Female

DRUGS (2)
  1. CARBOPLATIN. [Suspect]
     Active Substance: CARBOPLATIN
     Indication: ENDOMETRIAL ADENOCARCINOMA
     Dosage: 745 MILLIGRAM, 1 CYCLE
     Route: 042
     Dates: start: 20201218
  2. PACLITAXEL. [Suspect]
     Active Substance: PACLITAXEL
     Indication: ENDOMETRIAL ADENOCARCINOMA
     Dosage: 200 MILLIGRAM, 1 CYCLE
     Route: 042
     Dates: start: 20201218, end: 20210115

REACTIONS (4)
  - Arthralgia [Unknown]
  - Nausea [Unknown]
  - Pruritus [Unknown]
  - Ageusia [Unknown]

NARRATIVE: CASE EVENT DATE: 20210209
